FAERS Safety Report 19272414 (Version 1)
Quarter: 2021Q2

REPORT INFORMATION
  Report Type: Spontaneous
  Country: US (occurrence: US)
  Receive Date: 20210518
  Receipt Date: 20210518
  Transmission Date: 20210717
  Serious: No
  Sender: FDA-Public Use
  Company Number: US-THERAPEUTICSMD-2021TMD01286

PATIENT
  Sex: Female

DRUGS (2)
  1. BIJUVA [Suspect]
     Active Substance: ESTRADIOL\PROGESTERONE
     Indication: FEELING ABNORMAL
  2. BIJUVA [Suspect]
     Active Substance: ESTRADIOL\PROGESTERONE
     Indication: INSOMNIA
     Dosage: 1 DOSAGE UNITS, 1X/DAY NIGHTLY
     Route: 048
     Dates: start: 20210313, end: 20210316

REACTIONS (7)
  - Anxiety [Unknown]
  - Somnolence [Unknown]
  - Asthenia [Unknown]
  - Off label use [Recovered/Resolved]
  - Neuropathy peripheral [Unknown]
  - Headache [Unknown]
  - Depressed mood [Unknown]

NARRATIVE: CASE EVENT DATE: 202103
